FAERS Safety Report 20834213 (Version 1)
Quarter: 2022Q2

REPORT INFORMATION
  Report Type: Spontaneous
  Country: US (occurrence: US)
  Receive Date: 20220516
  Receipt Date: 20220516
  Transmission Date: 20220721
  Serious: No
  Sender: FDA-Public Use
  Company Number: US-ALKERMES INC.-ALK-2022-002316

PATIENT
  Sex: Female

DRUGS (4)
  1. LYBALVI [Suspect]
     Active Substance: OLANZAPINE\SAMIDORPHAN L-MALATE
     Indication: Bipolar I disorder
     Dosage: UNK MILLIGRAM, QD
     Route: 048
     Dates: start: 202112
  2. ARIPIPRAZOLE [Concomitant]
     Active Substance: ARIPIPRAZOLE
     Indication: Product used for unknown indication
     Dosage: UNK
     Route: 065
  3. LURASIDONE [Concomitant]
     Active Substance: LURASIDONE
     Indication: Product used for unknown indication
     Route: 065
  4. CLOTHIAPINE [Concomitant]
     Active Substance: CLOTHIAPINE
     Indication: Product used for unknown indication
     Route: 065

REACTIONS (2)
  - Therapeutic response unexpected [Not Recovered/Not Resolved]
  - Low density lipoprotein increased [Not Recovered/Not Resolved]

NARRATIVE: CASE EVENT DATE: 20220324
